FAERS Safety Report 14914506 (Version 1)
Quarter: 2018Q2

REPORT INFORMATION
  Report Type: Spontaneous
  Country: US (occurrence: US)
  Receive Date: 20180518
  Receipt Date: 20180518
  Transmission Date: 20180711
  Serious: Yes (Other)
  Sender: FDA-Public Use
  Company Number: US-JAZZ-JPI-P-024825

PATIENT
  Age: 47 Year
  Sex: Female
  Weight: 41.36 kg

DRUGS (13)
  1. XYREM [Suspect]
     Active Substance: SODIUM OXYBATE
     Indication: INSOMNIA
     Dosage: UNK, SINGLE
     Route: 048
     Dates: start: 20120721, end: 2012
  2. THYROID [Suspect]
     Active Substance: LEVOTHYROXINE\LIOTHYRONINE
     Indication: AUTOIMMUNE THYROIDITIS
     Dates: end: 20120917
  3. CLONAZEPAM. [Concomitant]
     Active Substance: CLONAZEPAM
     Indication: INSOMNIA
  4. THYROID [Suspect]
     Active Substance: LEVOTHYROXINE\LIOTHYRONINE
     Dosage: 97.5 MG, UNK
  5. THYROID [Suspect]
     Active Substance: LEVOTHYROXINE\LIOTHYRONINE
     Dosage: 32.5 MG, UNK
  6. CLONAZEPAM. [Concomitant]
     Active Substance: CLONAZEPAM
     Indication: FIBROMYALGIA
  7. HYDROCORTISONE. [Concomitant]
     Active Substance: HYDROCORTISONE
     Indication: ADRENAL INSUFFICIENCY
  8. XYREM [Suspect]
     Active Substance: SODIUM OXYBATE
     Dosage: 4.5 G, BID
     Route: 048
     Dates: start: 2012
  9. DIAZEPAM. [Concomitant]
     Active Substance: DIAZEPAM
     Indication: FIBROMYALGIA
  10. FLUCONAZOLE. [Concomitant]
     Active Substance: FLUCONAZOLE
     Indication: FUNGAL INFECTION
  11. ESZOPICLONE. [Concomitant]
     Active Substance: ESZOPICLONE
     Indication: INSOMNIA
  12. PROGESTERONE. [Concomitant]
     Active Substance: PROGESTERONE
     Indication: PROGESTERONE DECREASED
     Dates: start: 201206
  13. PROGESTERONE. [Concomitant]
     Active Substance: PROGESTERONE
     Indication: INSOMNIA

REACTIONS (9)
  - Eye irritation [Unknown]
  - Pollakiuria [Unknown]
  - Drug ineffective [Unknown]
  - Heart rate increased [Unknown]
  - Feeling abnormal [Unknown]
  - Weight decreased [Not Recovered/Not Resolved]
  - Drug ineffective for unapproved indication [Unknown]
  - Anti-thyroid antibody positive [Unknown]
  - Blood pressure increased [Unknown]

NARRATIVE: CASE EVENT DATE: 201208
